FAERS Safety Report 24902880 (Version 2)
Quarter: 2025Q1

REPORT INFORMATION
  Report Type: Spontaneous
  Country: FR (occurrence: None)
  Receive Date: 20250130
  Receipt Date: 20250217
  Transmission Date: 20250408
  Serious: Yes (Hospitalization)
  Sender: Valinor Pharma
  Company Number: FR-Valinor Pharma, LLC-VLR202501-000001

PATIENT
  Age: 85 Year
  Sex: Male

DRUGS (1)
  1. NALOXEGOL OXALATE [Suspect]
     Active Substance: NALOXEGOL OXALATE
     Indication: Constipation
     Route: 065

REACTIONS (3)
  - Hospitalisation [Unknown]
  - Product availability issue [Unknown]
  - Product dose omission issue [Unknown]

NARRATIVE: CASE EVENT DATE: 20250101
